FAERS Safety Report 5352449-0 (Version None)
Quarter: 2007Q2

REPORT INFORMATION
  Report Type: 
  Country: None (occurrence: None)
  Receive Date: 20070607
  Receipt Date: 20070607
  Transmission Date: 20071010
  Serious: Yes (Hospitalization)
  Sender: FDA-Public Use
  Company Number: None

PATIENT
  Age: 23 Year
  Sex: Female
  Weight: 116 kg

DRUGS (2)
  1. FENOFIBRATE [Suspect]
     Indication: HEPATIC STEATOSIS
     Dosage: 1 X / DAY - ORAL (047)
     Route: 048
     Dates: start: 20060110, end: 20061211
  2. FENOFIBRATE [Suspect]
     Indication: HYPERCHOLESTEROLAEMIA
     Dosage: 1 X / DAY - ORAL (047)
     Route: 048
     Dates: start: 20060110, end: 20061211

REACTIONS (1)
  - URINARY TRACT INFECTION [None]
